FAERS Safety Report 8988492 (Version 1)
Quarter: 2012Q4

REPORT INFORMATION
  Report Type: Spontaneous
  Country: AR (occurrence: None)
  Receive Date: 20121218
  Receipt Date: 20121218
  Transmission Date: 20130627
  Serious: Yes (Hospitalization)
  Sender: FDA-Public Use
  Company Number: 2012ST000165

PATIENT
  Age: 57 Year
  Sex: Male

DRUGS (8)
  1. FENOFIBRATE [Suspect]
     Indication: TRIGLYCERIDE INCREASED
  2. MYCOPHENOLATE MOFETIL (MYCOPHENOLATE MOFETIL) [Suspect]
  3. MEPREDNISONE [Concomitant]
  4. LOSARTAN [Concomitant]
  5. EZETIMIBE [Concomitant]
  6. SIMVASTATIN [Concomitant]
  7. PIPERACILLIN TAZOBACTAM [Concomitant]
  8. G-CSF [Concomitant]

REACTIONS (2)
  - Drug interaction [None]
  - Febrile neutropenia [None]
